FAERS Safety Report 23891576 (Version 2)
Quarter: 2024Q3

REPORT INFORMATION
  Report Type: Report from Study
  Country: US (occurrence: US)
  Receive Date: 20240524
  Receipt Date: 20240917
  Transmission Date: 20241016
  Serious: Yes (Hospitalization, Other)
  Sender: ABBVIE
  Company Number: US-ABBVIE-5771187

PATIENT
  Sex: Male

DRUGS (1)
  1. SKYRIZI [Suspect]
     Active Substance: RISANKIZUMAB-RZAA
     Indication: Crohn^s disease
     Dosage: LAST ADMIN DATE-2024
     Route: 058
     Dates: start: 20240210

REACTIONS (10)
  - Pneumothorax [Not Recovered/Not Resolved]
  - Dyschezia [Not Recovered/Not Resolved]
  - Pleural effusion [Unknown]
  - Chest tube insertion [Unknown]
  - Joint swelling [Recovering/Resolving]
  - Agitation [Unknown]
  - Confusional state [Unknown]
  - Sciatica [Not Recovered/Not Resolved]
  - Skin cancer [Not Recovered/Not Resolved]
  - Aortic aneurysm [Not Recovered/Not Resolved]

NARRATIVE: CASE EVENT DATE: 20240101
